FAERS Safety Report 4986850-1 (Version None)
Quarter: 2006Q2

REPORT INFORMATION
  Report Type: 
  Country: None (occurrence: None)
  Receive Date: 20060428
  Receipt Date: 20060413
  Transmission Date: 20061013
  Serious: Yes (Hospitalization)
  Sender: FDA-Public Use
  Company Number: JP-ABBOTT-06P-087-0330717-00

PATIENT
  Sex: Female
  Weight: 9 kg

DRUGS (2)
  1. CEFZON FINE GRANULES [Suspect]
     Indication: DRUG USE FOR UNKNOWN INDICATION
     Route: 048
     Dates: start: 20060329, end: 20060329
  2. ENTERONON R [Concomitant]
     Indication: DRUG USE FOR UNKNOWN INDICATION
     Route: 065
     Dates: start: 20060329, end: 20060329

REACTIONS (2)
  - PYREXIA [None]
  - URTICARIA [None]
